FAERS Safety Report 9370180 (Version 1)
Quarter: 2013Q2

REPORT INFORMATION
  Report Type: Spontaneous
  Country: US (occurrence: US)
  Receive Date: 20130626
  Receipt Date: 20130626
  Transmission Date: 20140414
  Serious: No
  Sender: FDA-Public Use
  Company Number: US-B.I. PHARMACEUTICALS,INC./RIDGEFIELD-2013-BI-16949BP

PATIENT
  Age: 65 Year
  Sex: Female
  Weight: 64 kg

DRUGS (2)
  1. COMBIVENT [Suspect]
     Indication: ASTHMA
     Dosage: STRENGTH: 20 MCG / 100 MCG; DAILY DOSE: 320MCG/1600MCG
     Route: 055
     Dates: start: 20130528
  2. COMBIVENT [Suspect]
     Indication: CHRONIC OBSTRUCTIVE PULMONARY DISEASE
     Dosage: STRENTH:20 MCG / 100 MCG; DOSE:160 MCG / 800 MCG
     Route: 055
     Dates: start: 20130606

REACTIONS (7)
  - Asthma [Recovered/Resolved]
  - Dyspnoea [Recovered/Resolved]
  - Incontinence [Recovered/Resolved]
  - Nervousness [Not Recovered/Not Resolved]
  - Overdose [Unknown]
  - Dyspnoea [Recovered/Resolved]
  - Incontinence [Recovered/Resolved]
